FAERS Safety Report 6177592-8 (Version None)
Quarter: 2009Q2

REPORT INFORMATION
  Report Type: 
  Country: None (occurrence: None)
  Receive Date: 20090504
  Receipt Date: 20090422
  Transmission Date: 20091009
  Serious: Yes (Hospitalization)
  Sender: FDA-Public Use
  Company Number: TW-PFIZER INC-2009197454

PATIENT

DRUGS (7)
  1. SUNITINIB MALATE [Suspect]
     Indication: GASTROINTESTINAL STROMAL TUMOUR
     Dosage: 50 MG, UNK
     Route: 048
     Dates: start: 20060801, end: 20080701
  2. SENNA LEAF [Concomitant]
     Dosage: UNK
     Route: 048
     Dates: start: 20060811
  3. OXACILLIN SODIUM [Concomitant]
     Dosage: UNK
     Route: 048
     Dates: start: 20061011, end: 20061016
  4. SULINDAC [Concomitant]
     Dosage: UNK
     Route: 048
     Dates: start: 20061012, end: 20061030
  5. MAGNESIUM OXIDE [Concomitant]
     Dosage: UNK
     Route: 048
     Dates: start: 20061013, end: 20061030
  6. AMOXICILLIN TRIHYDRATE [Concomitant]
     Dosage: UNK
     Route: 048
     Dates: start: 20061016, end: 20061030
  7. NEOMYCIN [Concomitant]
     Dosage: UNK
     Route: 048
     Dates: start: 20061016, end: 20070907

REACTIONS (1)
  - ABDOMINAL DISTENSION [None]
